FAERS Safety Report 6977380-6 (Version None)
Quarter: 2010Q3

REPORT INFORMATION
  Report Type: 
  Country: None (occurrence: None)
  Receive Date: 20100910
  Receipt Date: 20100831
  Transmission Date: 20110219
  Serious: Yes (Other)
  Sender: FDA-Public Use
  Company Number: PHHY2010CA58646

PATIENT
  Sex: Female

DRUGS (1)
  1. ZOLEDRONIC [Suspect]
     Indication: OSTEOPOROSIS
     Dosage: 5 MG
     Dates: start: 20090928

REACTIONS (5)
  - DENTAL CARIES [None]
  - ENDODONTIC PROCEDURE [None]
  - ORAL PAIN [None]
  - TOOTH EXTRACTION [None]
  - TOOTH REPAIR [None]
